FAERS Safety Report 7183431-9 (Version None)
Quarter: 2010Q4

REPORT INFORMATION
  Report Type: 
  Country: None (occurrence: None)
  Receive Date: 20101222
  Receipt Date: 20101203
  Transmission Date: 20110411
  Serious: No
  Sender: FDA-Public Use
  Company Number: US-B.I. PHARMACEUTICALS,INC./RIDGEFIELD-2010-BP-12506BP

PATIENT
  Age: 27 Year
  Sex: Female

DRUGS (4)
  1. ZANTAC 150 [Suspect]
     Indication: GASTROOESOPHAGEAL REFLUX DISEASE
     Dosage: 300 MG
     Route: 048
     Dates: start: 20101103
  2. ZANTAC 150 [Suspect]
     Indication: TONGUE DISORDER
  3. ZANTAC 150 [Suspect]
  4. ACETAMINOPHEN [Concomitant]

REACTIONS (2)
  - GLOSSODYNIA [None]
  - TONGUE SPASM [None]
